FAERS Safety Report 6542414-X (Version None)
Quarter: 2010Q1

REPORT INFORMATION
  Report Type: 
  Country: None (occurrence: None)
  Receive Date: 20100114
  Receipt Date: 20100114
  Transmission Date: 20100710
  Serious: Yes (Disabling)
  Sender: FDA-Public Use
  Company Number: None

PATIENT
  Age: 56 Year
  Sex: Male
  Weight: 106.5953 kg

DRUGS (3)
  1. ZICAM NASAL SWABS [Suspect]
     Indication: NASAL CONGESTION
     Dosage: 1 SWAB 2 TIMES A DAY NASAL
     Route: 045
     Dates: start: 20070210, end: 20070216
  2. ZICAM NASAL SWABS [Suspect]
     Indication: NASOPHARYNGITIS
     Dosage: 1 SWAB 2 TIMES A DAY NASAL
     Route: 045
     Dates: start: 20070210, end: 20070216
  3. ZICAM NASAL SWABS [Suspect]
     Indication: SINUS CONGESTION
     Dosage: 1 SWAB 2 TIMES A DAY NASAL
     Route: 045
     Dates: start: 20070210, end: 20070216

REACTIONS (3)
  - AGEUSIA [None]
  - ANOSMIA [None]
  - NASAL DISCOMFORT [None]
